FAERS Safety Report 17558163 (Version 1)
Quarter: 2020Q1

REPORT INFORMATION
  Report Type: Spontaneous
  Country: US (occurrence: US)
  Receive Date: 20200319
  Receipt Date: 20200319
  Transmission Date: 20200409
  Serious: No
  Sender: FDA-Public Use
  Company Number: US-TEVA-2020-US-1201214

PATIENT
  Sex: Male

DRUGS (2)
  1. ALPRAZOLAM TEVA [Suspect]
     Active Substance: ALPRAZOLAM
     Indication: ANXIETY
  2. ALPRAZOLAM TEVA [Suspect]
     Active Substance: ALPRAZOLAM
     Indication: PANIC ATTACK
     Route: 065
     Dates: start: 2007

REACTIONS (7)
  - Impatience [Unknown]
  - Product quality issue [Unknown]
  - Drug ineffective [Unknown]
  - Apathy [Unknown]
  - Anxiety [Unknown]
  - Hyperhidrosis [Unknown]
  - Dyspnoea [Unknown]
